FAERS Safety Report 18898788 (Version 1)
Quarter: 2021Q1

REPORT INFORMATION
  Report Type: Spontaneous
  Country: RU (occurrence: RU)
  Receive Date: 20210216
  Receipt Date: 20210216
  Transmission Date: 20210420
  Serious: Yes (Other)
  Sender: FDA-Public Use
  Company Number: RU-TEVA-2021-RU-1880773

PATIENT
  Age: 45 Year
  Sex: Female

DRUGS (1)
  1. INDAPAMIDE RETARD?TEVA [Suspect]
     Active Substance: INDAPAMIDE
     Route: 065

REACTIONS (5)
  - Hypokinesia [Unknown]
  - Product substitution issue [Unknown]
  - Arrhythmia [Unknown]
  - Cardiac disorder [Unknown]
  - Blood potassium decreased [Unknown]
